FAERS Safety Report 9373676 (Version 1)
Quarter: 2013Q2

REPORT INFORMATION
  Report Type: Spontaneous
  Country: JP (occurrence: JP)
  Receive Date: 20130627
  Receipt Date: 20130627
  Transmission Date: 20140414
  Serious: Yes (Other)
  Sender: FDA-Public Use
  Company Number: JP-US-EMD SERONO, INC.-7217962

PATIENT
  Age: 38 Year
  Sex: Female

DRUGS (2)
  1. GONAL-F [Suspect]
     Indication: OVULATION INDUCTION
  2. CLOMID [Concomitant]
     Indication: OVULATION INDUCTION
     Route: 048

REACTIONS (1)
  - Ovarian hyperstimulation syndrome [Unknown]
